FAERS Safety Report 6112656-6 (Version None)
Quarter: 2009Q1

REPORT INFORMATION
  Report Type: 
  Country: None (occurrence: None)
  Receive Date: 20090312
  Receipt Date: 20090309
  Transmission Date: 20090719
  Serious: Yes (Other)
  Sender: FDA-Public Use
  Company Number: NL-ASTRAZENECA-2008AC02882

PATIENT
  Age: 65 Year
  Sex: Female

DRUGS (7)
  1. SYMBICORT TH [Suspect]
     Indication: ASTHMA
     Dosage: 200/6 UG BID
     Route: 055
     Dates: start: 20070207
  2. AMARYL [Concomitant]
     Indication: DIABETES MELLITUS
     Dates: start: 20040519
  3. METFORMIN HCL [Concomitant]
     Indication: DIABETES MELLITUS
     Dates: start: 20071211
  4. ATENOLOL [Concomitant]
     Dates: start: 20010424
  5. ATORVASTATIN CALCIUM [Concomitant]
     Indication: BLOOD CHOLESTEROL
     Dates: start: 20071001
  6. LOSEC [Concomitant]
  7. LISINOPRIL AND HYDROCHLOROTHIAZIDE [Concomitant]
     Dosage: 20/12.5 DAILY
     Dates: start: 20071001

REACTIONS (1)
  - ABSCESS [None]
